FAERS Safety Report 7038129-4 (Version None)
Quarter: 2010Q4

REPORT INFORMATION
  Report Type: 
  Country: None (occurrence: None)
  Receive Date: 20101011
  Receipt Date: 20101004
  Transmission Date: 20110411
  Serious: Yes (Other)
  Sender: FDA-Public Use
  Company Number: BR-SANOFI-AVENTIS-2010SA060219

PATIENT
  Sex: Male
  Weight: 62 kg

DRUGS (14)
  1. APIDRA [Suspect]
     Dosage: ACCORDING TO GLYCEMIC RESULTS OR CARBOHYDRATE COUNTING
     Route: 058
     Dates: start: 20070101
  2. AUTOPEN 24 [Suspect]
  3. LANTUS [Concomitant]
     Route: 058
     Dates: start: 20070101
  4. PROPRANOLOL HYDROCHLORIDE [Concomitant]
     Indication: BLOOD PRESSURE
     Route: 048
     Dates: start: 19940101
  5. PURAN T4 [Concomitant]
     Indication: HYPOTHYROIDISM
     Route: 048
     Dates: start: 19940101
  6. INDAPEN [Concomitant]
     Indication: HYPERTENSION
     Route: 048
  7. OMNIC [Concomitant]
     Indication: PROSTATIC DISORDER
     Route: 048
     Dates: start: 20100801
  8. LEXAPRO [Concomitant]
     Route: 048
     Dates: start: 20100701
  9. ASPIRIN [Concomitant]
     Indication: ANTICOAGULANT THERAPY
     Route: 048
     Dates: start: 19940101
  10. LIPITOR [Concomitant]
     Route: 048
     Dates: start: 19940101
  11. ZETIA [Concomitant]
     Route: 048
     Dates: start: 20070101
  12. OXYBUTYNIN [Concomitant]
     Indication: PROSTATIC DISORDER
     Route: 048
     Dates: start: 20100701
  13. TRAZODONE HYDROCHLORIDE [Concomitant]
     Indication: SEDATIVE THERAPY
     Route: 048
     Dates: start: 20100701
  14. RIVOTRIL [Concomitant]
     Indication: INSOMNIA
     Route: 048
     Dates: start: 20100701

REACTIONS (6)
  - COLON CANCER [None]
  - DIZZINESS [None]
  - GASTRIC CANCER [None]
  - HYPOGLYCAEMIA [None]
  - VERTIGO [None]
  - VISION BLURRED [None]
